FAERS Safety Report 10723074 (Version 1)
Quarter: 2015Q1

REPORT INFORMATION
  Report Type: Spontaneous
  Country: JP (occurrence: None)
  Receive Date: 20150114
  Receipt Date: 20150114
  Transmission Date: 20150721
  Serious: Yes (Hospitalization, Other)
  Sender: FDA-Public Use
  Company Number: 2014SCAL000266

PATIENT
  Age: 86 Year
  Sex: Female
  Weight: 48 kg

DRUGS (10)
  1. DULOXETINE HYDROCHLORIDE (DULOXETINE HYDROCHLORIDE) [Suspect]
     Active Substance: DULOXETINE HYDROCHLORIDE
     Indication: DEPRESSION
     Dosage: 6 DAYS BEFORE ADMISSION
  2. TRIAZOLAM. [Concomitant]
     Active Substance: TRIAZOLAM
  3. LORAZEPAM. [Concomitant]
     Active Substance: LORAZEPAM
  4. TOCOPHEROL W/VITAMIN B NOS [Concomitant]
  5. DOMPERIDONE [Concomitant]
     Active Substance: DOMPERIDONE
  6. DIPHENIDOL (DIPHENIDOL HYDROCHLORIDE) [Concomitant]
  7. BETAHISTINE /0041802/ (BETHAHISTINE HYDROCHLORIDE) [Concomitant]
  8. DOXAZOSIN [Concomitant]
     Active Substance: DOXAZOSIN\DOXAZOSIN MESYLATE
  9. OXYBUTYNIN [Concomitant]
     Active Substance: OXYBUTYNIN
  10. TRICHLORMETHIAZIDE [Suspect]
     Active Substance: TRICHLORMETHIAZIDE
     Indication: PRODUCT USED FOR UNKNOWN INDICATION
     Dosage: MORE THAN 1-YEAR

REACTIONS (8)
  - Disorientation [None]
  - Back pain [None]
  - Thoracic vertebral fracture [None]
  - Drug interaction [None]
  - Inappropriate antidiuretic hormone secretion [None]
  - Fall [None]
  - Nausea [None]
  - Compression fracture [None]
